FAERS Safety Report 18902590 (Version 4)
Quarter: 2021Q2

REPORT INFORMATION
  Report Type: Spontaneous
  Country: PT (occurrence: PT)
  Receive Date: 20210217
  Receipt Date: 20210517
  Transmission Date: 20210717
  Serious: Yes (Other)
  Sender: FDA-Public Use
  Company Number: NVSC2021PT032642

PATIENT
  Sex: Female

DRUGS (1)
  1. BEOVU [Suspect]
     Active Substance: BROLUCIZUMAB-DBLL
     Indication: PRODUCT USED FOR UNKNOWN INDICATION
     Dosage: UNK, IN SINGLE EYE
     Route: 065
     Dates: start: 20210202

REACTIONS (17)
  - Eye pain [Unknown]
  - Subretinal fluid [Recovered/Resolved]
  - Uveitis [Not Recovered/Not Resolved]
  - Ocular hyperaemia [Unknown]
  - Vitritis [Unknown]
  - Hypopyon [Unknown]
  - Anterior chamber fibrin [Unknown]
  - Blindness transient [Recovering/Resolving]
  - Iritis [Unknown]
  - Retinal depigmentation [Unknown]
  - Vitreous opacities [Unknown]
  - Eye opacity [Unknown]
  - Vision blurred [Unknown]
  - Visual acuity reduced [Unknown]
  - Macular thickening [Unknown]
  - Anterior chamber flare [Unknown]
  - Subretinal hyperreflective exudation [Unknown]

NARRATIVE: CASE EVENT DATE: 20210325
